FAERS Safety Report 19759047 (Version 1)
Quarter: 2021Q3

REPORT INFORMATION
  Report Type: Spontaneous
  Country: FR (occurrence: FR)
  Receive Date: 20210827
  Receipt Date: 20210827
  Transmission Date: 20211014
  Serious: Yes (Hospitalization)
  Sender: FDA-Public Use
  Company Number: FR-MYLANLABS-2021M1055331

PATIENT
  Age: 48 Year
  Sex: Male
  Weight: 83 kg

DRUGS (7)
  1. METHOTREXATE. [Suspect]
     Active Substance: METHOTREXATE
     Indication: FOLLICULAR LYMPHOMA
     Dosage: 15 MILLIGRAM, TOTAL
     Route: 037
     Dates: start: 20210224, end: 20210224
  2. VINCRISTINE SULFATE. [Suspect]
     Active Substance: VINCRISTINE SULFATE
     Indication: FOLLICULAR LYMPHOMA
     Dosage: 2 MILLIGRAM, TOTAL
     Route: 041
     Dates: start: 20210224, end: 20210224
  3. GAZYVARO [Suspect]
     Active Substance: OBINUTUZUMAB
     Indication: FOLLICULAR LYMPHOMA
     Dosage: 100 MG LE J1; 900 MG LE J2
     Route: 041
     Dates: start: 20210223, end: 20210224
  4. PREDNISOLONE. [Suspect]
     Active Substance: PREDNISOLONE
     Indication: FOLLICULAR LYMPHOMA
     Dosage: 40 MILLIGRAM, TOTAL
     Route: 037
     Dates: start: 20210224, end: 20210224
  5. DOXORUBICINE TEVA [Suspect]
     Active Substance: DOXORUBICIN
     Indication: FOLLICULAR LYMPHOMA
     Dosage: 100 MILLIGRAM, TOTAL
     Route: 042
     Dates: start: 20210224, end: 20210224
  6. SOLU?MEDROL [Suspect]
     Active Substance: METHYLPREDNISOLONE SODIUM SUCCINATE
     Indication: FOLLICULAR LYMPHOMA
     Dosage: 80 MILLIGRAM, QD
     Route: 042
     Dates: start: 20210223, end: 20210228
  7. ENDOXAN                            /00021101/ [Suspect]
     Active Substance: CYCLOPHOSPHAMIDE
     Indication: FOLLICULAR LYMPHOMA
     Dosage: 1500 MILLIGRAM, TOTAL
     Route: 041
     Dates: start: 20210224, end: 20210224

REACTIONS (3)
  - Agitation [Recovered/Resolved]
  - Confusional state [Recovered/Resolved]
  - Disorientation [Recovered/Resolved]

NARRATIVE: CASE EVENT DATE: 20210302
